FAERS Safety Report 8540606-1 (Version None)
Quarter: 2012Q3

REPORT INFORMATION
  Report Type: 
  Country: None (occurrence: None)
  Receive Date: 20120726
  Receipt Date: 20120628
  Transmission Date: 20120928
  Serious: Yes (Hospitalization)
  Sender: FDA-Public Use
  Company Number: US-009507513-1203USA01731

PATIENT

DRUGS (12)
  1. PRINIVIL [Suspect]
     Dosage: 40 MG, UNK
     Route: 048
     Dates: start: 20101211
  2. HYDRALAZINE HCL [Suspect]
     Dosage: 50 MG, BID
     Dates: start: 20111001
  3. HYDRALAZINE HCL [Suspect]
     Dosage: 50 MG, UNK
     Dates: start: 20111201
  4. PRINIVIL [Suspect]
     Dosage: 40 MG, UNK
     Route: 048
     Dates: end: 20110408
  5. HYDRALAZINE HCL [Suspect]
     Dosage: 100 MG, TID
  6. LISINOPRIL [Suspect]
     Dosage: 40 MG, UNK
     Dates: start: 20120601
  7. SAXAGLIPTIN [Suspect]
     Indication: TYPE 2 DIABETES MELLITUS
     Dosage: UNK
     Dates: start: 20101211
  8. LISINOPRIL [Suspect]
     Indication: TYPE 2 DIABETES MELLITUS
     Dosage: 40 MG, UNK
     Dates: start: 20101211, end: 20110402
  9. PHENYTOIN [Concomitant]
     Dosage: UNK
     Dates: start: 20110729
  10. LANTUS [Suspect]
     Indication: TYPE 2 DIABETES MELLITUS
     Dosage: 80 IU, UNK
     Route: 058
  11. ASPIRIN [Concomitant]
     Dates: start: 20101210
  12. NIACIN [Concomitant]

REACTIONS (4)
  - HYPOTENSION [None]
  - RENAL FAILURE ACUTE [None]
  - CEREBRAL DISORDER [None]
  - CORONARY ARTERY DISEASE [None]
